FAERS Safety Report 17405870 (Version 2)
Quarter: 2020Q1

REPORT INFORMATION
  Report Type: Spontaneous
  Country: US (occurrence: US)
  Receive Date: 20200212
  Receipt Date: 20200324
  Transmission Date: 20200409
  Serious: Yes (Other)
  Sender: FDA-Public Use
  Company Number: US-ASTRAZENECA-2020SE18215

PATIENT
  Age: 853 Month
  Sex: Female
  Weight: 74.8 kg

DRUGS (13)
  1. RALOXIFENE HCL [Concomitant]
     Active Substance: RALOXIFENE
     Route: 048
  2. AROVASTATIN [Concomitant]
     Route: 048
  3. BYDUREON BCISE [Suspect]
     Active Substance: EXENATIDE
     Indication: TYPE 2 DIABETES MELLITUS
     Route: 058
  4. METFORMIN [Concomitant]
     Active Substance: METFORMIN HYDROCHLORIDE
     Indication: DIABETES MELLITUS
     Route: 048
  5. SOTALOL HCL [Concomitant]
     Active Substance: SOTALOL
     Route: 048
  6. MELOXICAM. [Concomitant]
     Active Substance: MELOXICAM
     Route: 048
  7. AMITRIPTYLINE [Concomitant]
     Active Substance: AMITRIPTYLINE
     Indication: SLEEP DISORDER
     Dosage: 50.0MG UNKNOWN
     Route: 048
  8. ROPINROLE [Concomitant]
     Active Substance: ROPINIROLE
     Dosage: 1.0MG UNKNOWN
     Route: 048
  9. METOPROLOL TARTRATE. [Suspect]
     Active Substance: METOPROLOL TARTRATE
     Route: 048
  10. GLIPIZIDE. [Concomitant]
     Active Substance: GLIPIZIDE
     Route: 048
  11. OMEPRAZOLE DR [Concomitant]
     Active Substance: OMEPRAZOLE
     Route: 048
  12. SULFAMETHOZAZOLE [Concomitant]
     Dosage: 400/80 MG 1 PILL IN THE EVENING, DAILY
     Route: 048
  13. CALCIUM CITRATE [Concomitant]
     Active Substance: CALCIUM CITRATE
     Indication: BONE LOSS
     Dosage: 500.0MG UNKNOWN
     Route: 048

REACTIONS (8)
  - Device issue [Unknown]
  - Neck pain [Not Recovered/Not Resolved]
  - Wrong technique in device usage process [Unknown]
  - Head banging [Unknown]
  - Amnesia [Not Recovered/Not Resolved]
  - Hallucination [Not Recovered/Not Resolved]
  - Dislocation of vertebra [Unknown]
  - Bone fragmentation [Unknown]

NARRATIVE: CASE EVENT DATE: 201812
